FAERS Safety Report 7495141-9 (Version None)
Quarter: 2011Q2

REPORT INFORMATION
  Report Type: 
  Country: None (occurrence: None)
  Receive Date: 20110520
  Receipt Date: 20110517
  Transmission Date: 20111010
  Serious: Yes (Other)
  Sender: FDA-Public Use
  Company Number: JP-ABBOTT-11P-087-0722185-00

PATIENT
  Sex: Female

DRUGS (4)
  1. ASTOMIN [Concomitant]
     Indication: BRONCHITIS
     Route: 048
     Dates: start: 20110416, end: 20110420
  2. CLARITH TAB [Suspect]
     Indication: BRONCHITIS
     Route: 048
     Dates: start: 20110416, end: 20110419
  3. RESPLEN [Concomitant]
     Indication: BRONCHITIS
     Route: 048
     Dates: start: 20110416, end: 20110420
  4. BISOLVON [Concomitant]
     Indication: BRONCHITIS
     Dosage: TID
     Route: 048
     Dates: start: 20110416, end: 20110420

REACTIONS (2)
  - DISORIENTATION [None]
  - MEMORY IMPAIRMENT [None]
